FAERS Safety Report 4614386-6 (Version None)
Quarter: 2005Q2

REPORT INFORMATION
  Report Type: 
  Country: None (occurrence: None)
  Receive Date: 20050310
  Receipt Date: 20041129
  Transmission Date: 20051028
  Serious: Yes (Other)
  Sender: FDA-Public Use
  Company Number: 04-11-1649

PATIENT
  Age: 57 Year
  Sex: Female
  Weight: 58.0604 kg

DRUGS (3)
  1. TAMOXIFEN CITRATE [Suspect]
     Indication: BREAST CANCER
     Dosage: 20MG PM ORAL
     Route: 048
     Dates: start: 20030201
  2. MULTI-VITAMINS [Concomitant]
  3. CALCIUM GLUCONATE [Concomitant]

REACTIONS (1)
  - CATARACT [None]
